FAERS Safety Report 18673794 (Version 1)
Quarter: 2020Q4

REPORT INFORMATION
  Report Type: Spontaneous
  Country: TR (occurrence: TR)
  Receive Date: 20201228
  Receipt Date: 20201228
  Transmission Date: 20210114
  Serious: Yes (Death, Life-Threatening, Hospitalization)
  Sender: FDA-Public Use
  Company Number: TR-BEXIMCO-2020BEX00174

PATIENT
  Age: 16 Year
  Sex: Female

DRUGS (2)
  1. METFORMIN HYDROCHLORIDE. [Suspect]
     Active Substance: METFORMIN HYDROCHLORIDE
     Indication: SUICIDE ATTEMPT
     Dosage: 100 TABLETS
     Route: 048
  2. NATEGLINIDE. [Suspect]
     Active Substance: NATEGLINIDE
     Indication: SUICIDE ATTEMPT
     Dosage: 84 TABLETS
     Route: 048

REACTIONS (6)
  - Multiple organ dysfunction syndrome [Fatal]
  - Completed suicide [Fatal]
  - Overdose [Fatal]
  - Lactic acidosis [Recovered/Resolved]
  - Coma [Not Recovered/Not Resolved]
  - Cardiac arrest [Recovered/Resolved]
